FAERS Safety Report 6240866-6 (Version None)
Quarter: 2009Q2

REPORT INFORMATION
  Report Type: 
  Country: None (occurrence: None)
  Receive Date: 20090619
  Receipt Date: 20090609
  Transmission Date: 20091009
  Serious: Yes (Disabling)
  Sender: FDA-Public Use
  Company Number: GXKR2009US06684

PATIENT
  Age: 43 Year
  Sex: Female

DRUGS (1)
  1. PROMETHAZINE [Suspect]
     Indication: NAUSEA
     Dosage: INTRA-ARTERIAL
     Route: 013

REACTIONS (13)
  - ARTERIAL OCCLUSIVE DISEASE [None]
  - CYANOSIS [None]
  - DEHYDRATION [None]
  - DRUG ADMINISTRATION ERROR [None]
  - ERYTHEMA [None]
  - FINGER AMPUTATION [None]
  - GASTROENTERITIS VIRAL [None]
  - ISCHAEMIA [None]
  - NECROSIS [None]
  - PAIN [None]
  - PERIPHERAL COLDNESS [None]
  - SKIN DISCOLOURATION [None]
  - VASOSPASM [None]
